FAERS Safety Report 24430974 (Version 2)
Quarter: 2024Q4

REPORT INFORMATION
  Report Type: Spontaneous
  Country: US (occurrence: US)
  Receive Date: 20241014
  Receipt Date: 20241115
  Transmission Date: 20250114
  Serious: No
  Sender: SANOFI AVENTIS
  Company Number: US-SA-2024SA289644

PATIENT
  Age: 55 Year
  Sex: Female

DRUGS (1)
  1. DUPIXENT [Suspect]
     Active Substance: DUPILUMAB
     Indication: Neurodermatitis
     Dosage: 300 MG, QOW
     Route: 058

REACTIONS (3)
  - Pruritus [Unknown]
  - Swelling [Unknown]
  - Neurodermatitis [Unknown]

NARRATIVE: CASE EVENT DATE: 20240901
